FAERS Safety Report 15387481 (Version 3)
Quarter: 2025Q3

REPORT INFORMATION
  Report Type: Spontaneous
  Country: IL (occurrence: IL)
  Receive Date: 20180914
  Receipt Date: 20250825
  Transmission Date: 20251020
  Serious: Yes (Other)
  Sender: MERCK SHARP & DOHME LLC
  Company Number: IL-009507513-1809ISR006204

PATIENT
  Age: 19 Year
  Sex: Female

DRUGS (3)
  1. CASPOFUNGIN ACETATE [Suspect]
     Active Substance: CASPOFUNGIN ACETATE
     Indication: Mucormycosis
     Dosage: DOSE DESCRIPTION : 50 MG/M2, QD?DAILY DOSE : 50 MILLIGRAM/SQ. METER?REGIMEN DOSE : 1050  MILLIGRA...
  2. liposomal amphotericin B (LAMB) [Concomitant]
     Indication: Mucormycosis
     Dosage: DOSE DESCRIPTION : 5 MG/KG, QD?DAILY DOSE : 5 MILLIGRAM/KILOGRAM?REGIMEN DOSE : 105  MILLIGRAM/KI...
  3. PEMBROLIZUMAB [Concomitant]
     Active Substance: PEMBROLIZUMAB
     Indication: Hodgkin^s disease

REACTIONS (2)
  - Mucormycosis [Recovered/Resolved]
  - Drug ineffective [Unknown]
